FAERS Safety Report 7618501-1 (Version None)
Quarter: 2011Q3

REPORT INFORMATION
  Report Type: 
  Country: None (occurrence: None)
  Receive Date: 20110718
  Receipt Date: 20110714
  Transmission Date: 20111222
  Serious: No
  Sender: FDA-Public Use
  Company Number: US-PFIZER INC-2011160050

PATIENT
  Sex: Male
  Weight: 112.47 kg

DRUGS (3)
  1. LISINOPRIL [Concomitant]
     Indication: HYPERTENSION
     Dosage: UNK
  2. POTASSIUM [Concomitant]
     Dosage: UNK
  3. SERTRALINE HYDROCHLORIDE [Suspect]
     Indication: ANXIETY
     Dosage: 50 MG, 2X/DAY
     Route: 048
     Dates: start: 20100507, end: 20100704

REACTIONS (5)
  - NAUSEA [None]
  - HEART RATE INCREASED [None]
  - TREMOR [None]
  - HYPERHIDROSIS [None]
  - DIARRHOEA [None]
